FAERS Safety Report 7552183-2 (Version None)
Quarter: 2011Q2

REPORT INFORMATION
  Report Type: 
  Country: None (occurrence: None)
  Receive Date: 20110616
  Receipt Date: 20030527
  Transmission Date: 20111010
  Serious: Yes (Hospitalization)
  Sender: FDA-Public Use
  Company Number: PHHO2003JP06923

PATIENT
  Sex: Male
  Weight: 60 kg

DRUGS (1)
  1. DIOVAN [Suspect]
     Indication: ESSENTIAL HYPERTENSION
     Dosage: 80 MG, QD
     Route: 048
     Dates: start: 20020627, end: 20030103

REACTIONS (1)
  - FALL [None]
